FAERS Safety Report 21112893 (Version 1)
Quarter: 2022Q3

REPORT INFORMATION
  Report Type: Spontaneous
  Country: US (occurrence: None)
  Receive Date: 20220721
  Receipt Date: 20220721
  Transmission Date: 20221027
  Serious: No
  Sender: FDA-Public Use
  Company Number: None

PATIENT
  Age: 34 Year
  Sex: Male

DRUGS (1)
  1. PULMOZYME [Suspect]
     Active Substance: DORNASE ALFA
     Dosage: FREQUENCY : DAILY;?OTHER ROUTE : OTHER;?
     Route: 050
     Dates: start: 20211229

REACTIONS (1)
  - Seizure [None]

NARRATIVE: CASE EVENT DATE: 20220714
